FAERS Safety Report 8541769-4 (Version None)
Quarter: 2012Q3

REPORT INFORMATION
  Report Type: 
  Country: None (occurrence: None)
  Receive Date: 20120726
  Receipt Date: 20110914
  Transmission Date: 20120928
  Serious: No
  Sender: FDA-Public Use
  Company Number: US-ASTRAZENECA-2011SE53498

PATIENT
  Sex: Female

DRUGS (10)
  1. SIMVASTATIN [Concomitant]
  2. SEROQUEL [Suspect]
     Dosage: 2 TAB HS
     Route: 048
  3. DEPAKOTE [Concomitant]
     Indication: AFFECTIVE DISORDER
  4. SEROQUEL [Suspect]
     Dosage: 2 TAB HS
     Route: 048
  5. LEVOTHYROXINE SODIUM [Concomitant]
  6. SEROQUEL [Suspect]
     Indication: SLEEP DISORDER
     Route: 048
     Dates: start: 20060101
  7. SEROQUEL [Suspect]
     Indication: MOOD SWINGS
     Route: 048
     Dates: start: 20060101
  8. DIVALPROEX SODIUM [Concomitant]
  9. METOPROLOL SUCCINATE [Concomitant]
  10. CRESTOR [Concomitant]

REACTIONS (4)
  - INSOMNIA [None]
  - IRRITABILITY [None]
  - ANXIETY [None]
  - OFF LABEL USE [None]
